FAERS Safety Report 10441815 (Version 1)
Quarter: 2014Q3

REPORT INFORMATION
  Report Type: Report from Study
  Country: US (occurrence: US)
  Receive Date: 20140908
  Receipt Date: 20140908
  Transmission Date: 20150326
  Serious: Yes (Hospitalization, Other)
  Sender: FDA-Public Use
  Company Number: US-ABBVIE-14K-163-1279203-00

PATIENT
  Age: 25 Year
  Sex: Female
  Weight: 49.03 kg

DRUGS (4)
  1. MERCAPTOPURINE. [Concomitant]
     Active Substance: MERCAPTOPURINE
     Indication: CROHN^S DISEASE
  2. HUMIRA [Suspect]
     Active Substance: ADALIMUMAB
     Indication: CROHN^S DISEASE
     Dates: start: 201311
  3. HUMIRA [Suspect]
     Active Substance: ADALIMUMAB
     Dates: start: 201406, end: 20140825
  4. LIALDA [Concomitant]
     Active Substance: MESALAMINE
     Indication: CROHN^S DISEASE

REACTIONS (13)
  - Abdominal pain [Unknown]
  - Aspergillus test positive [Unknown]
  - Diarrhoea [Recovered/Resolved]
  - Hilar lymphadenopathy [Unknown]
  - Haemorrhage [Recovered/Resolved]
  - Pericardial effusion [Unknown]
  - Lymphadenopathy mediastinal [Unknown]
  - Mycoplasma test positive [Unknown]
  - Pyrexia [Recovered/Resolved]
  - Histoplasmosis [Unknown]
  - Drug ineffective [Recovered/Resolved]
  - Ileal fistula [Recovered/Resolved]
  - Fungal test positive [Unknown]

NARRATIVE: CASE EVENT DATE: 2013
